FAERS Safety Report 14559368 (Version 2)
Quarter: 2018Q1

REPORT INFORMATION
  Report Type: Report from Study
  Country: AU (occurrence: AU)
  Receive Date: 20180221
  Receipt Date: 20180302
  Transmission Date: 20180509
  Serious: Yes (Hospitalization, Other)
  Sender: FDA-Public Use
  Company Number: AU-MYLANLABS-2018M1011451

PATIENT
  Age: 25 Year
  Sex: Female
  Weight: 80 kg

DRUGS (6)
  1. QUETIAPINE. [Concomitant]
     Active Substance: QUETIAPINE
     Indication: PRODUCT USED FOR UNKNOWN INDICATION
     Dosage: 800 MG, UNK
  2. ESCITALOPRAM [Concomitant]
     Active Substance: ESCITALOPRAM OXALATE
     Indication: PRODUCT USED FOR UNKNOWN INDICATION
     Dosage: 10 MG, AM
  3. METFORMIN [Concomitant]
     Active Substance: METFORMIN HYDROCHLORIDE
     Indication: PRODUCT USED FOR UNKNOWN INDICATION
     Dosage: 500 MG, UNK
  4. CLOZARIL [Suspect]
     Active Substance: CLOZAPINE
     Indication: SCHIZOPHRENIA
     Dosage: UNK
     Route: 048
     Dates: start: 2016, end: 2016
  5. CLOZARIL [Suspect]
     Active Substance: CLOZAPINE
     Dosage: 25 MG, UNK
     Route: 048
     Dates: start: 201802
  6. CLOZARIL [Suspect]
     Active Substance: CLOZAPINE
     Dosage: 75 MG, UNK
     Route: 048
     Dates: start: 20180205

REACTIONS (14)
  - Myocarditis [Recovered/Resolved]
  - Blood albumin decreased [Unknown]
  - Tachycardia [Unknown]
  - Schizophrenia [Unknown]
  - Blood alkaline phosphatase increased [Recovered/Resolved]
  - Alanine aminotransferase increased [Not Recovered/Not Resolved]
  - Pyrexia [Recovered/Resolved]
  - Eosinophil count increased [Not Recovered/Not Resolved]
  - Blood bicarbonate decreased [Recovered/Resolved]
  - Protein total decreased [Unknown]
  - Aspartate aminotransferase increased [Recovered/Resolved]
  - Blood chloride increased [Unknown]
  - C-reactive protein increased [Not Recovered/Not Resolved]
  - Globulins decreased [Unknown]

NARRATIVE: CASE EVENT DATE: 2016
